FAERS Safety Report 18737472 (Version 3)
Quarter: 2021Q4

REPORT INFORMATION
  Report Type: Spontaneous
  Country: US (occurrence: US)
  Receive Date: 20210113
  Receipt Date: 20211206
  Transmission Date: 20220303
  Serious: Yes (Other)
  Sender: FDA-Public Use
  Company Number: US-ALLERGAN-2101632US

PATIENT
  Sex: Female

DRUGS (4)
  1. UBRELVY [Suspect]
     Active Substance: UBROGEPANT
     Indication: Migraine
     Dosage: 100 MG, SINGLE
     Dates: start: 20201010, end: 20201010
  2. TOPAMAX [Concomitant]
     Active Substance: TOPIRAMATE
  3. MAGNESIUM [Concomitant]
     Active Substance: MAGNESIUM
  4. RIBOFLAVIN [Concomitant]
     Active Substance: RIBOFLAVIN

REACTIONS (3)
  - Anaphylactic reaction [Recovered/Resolved]
  - Rash [Recovered/Resolved]
  - Dyspnoea [Recovered/Resolved]

NARRATIVE: CASE EVENT DATE: 20201010
